FAERS Safety Report 10188821 (Version 1)
Quarter: 2014Q2

REPORT INFORMATION
  Report Type: Spontaneous
  Country: US (occurrence: US)
  Receive Date: 20140522
  Receipt Date: 20140522
  Transmission Date: 20141212
  Serious: No
  Sender: FDA-Public Use
  Company Number: US-SA-2014SA024869

PATIENT
  Age: 60 Year
  Sex: Male

DRUGS (2)
  1. LANTUS [Suspect]
     Indication: DIABETES MELLITUS
     Dosage: FREQWUENCY-QHS?PRODUCT END DATE ~ 1 WEEK AGO DOSE:14 UNIT(S)
     Route: 051
  2. INSULIN [Suspect]
     Route: 065

REACTIONS (3)
  - Weight decreased [Recovered/Resolved]
  - Blood glucose decreased [Recovered/Resolved]
  - Hyperhidrosis [Recovered/Resolved]
